FAERS Safety Report 4280780-9 (Version None)
Quarter: 2004Q1

REPORT INFORMATION
  Report Type: 
  Country: None (occurrence: None)
  Receive Date: 20040127
  Receipt Date: 20040119
  Transmission Date: 20041129
  Serious: Yes (Hospitalization, Other)
  Sender: FDA-Public Use
  Company Number: 200320442GDDC

PATIENT
  Age: 55 Year
  Sex: Female

DRUGS (3)
  1. GAVISCON [Suspect]
     Indication: GASTROOESOPHAGEAL REFLUX DISEASE
     Dosage: QID PO
     Dates: start: 20030901
  2. LANSOPRAZOLE [Concomitant]
  3. ATENOLOL [Concomitant]

REACTIONS (13)
  - ABDOMINAL PAIN UPPER [None]
  - ABNORMAL FAECES [None]
  - ASTHENIA [None]
  - COLITIS [None]
  - DECREASED APPETITE [None]
  - FAECES DISCOLOURED [None]
  - FATIGUE [None]
  - GASTRIC ULCER HAEMORRHAGE [None]
  - HIATUS HERNIA [None]
  - LABORATORY TEST ABNORMAL [None]
  - MELAENA [None]
  - OESOPHAGEAL ULCER HAEMORRHAGE [None]
  - UMBILICAL HERNIA [None]
